FAERS Safety Report 10425701 (Version 2)
Quarter: 2014Q4

REPORT INFORMATION
  Report Type: Spontaneous
  Country: IT (occurrence: IT)
  Receive Date: 20140903
  Receipt Date: 20141106
  Transmission Date: 20150528
  Serious: Yes (Death)
  Sender: FDA-Public Use
  Company Number: IT-ROCHE-1455399

PATIENT
  Age: 71 Year
  Sex: Male

DRUGS (1)
  1. ZELBORAF [Suspect]
     Active Substance: VEMURAFENIB
     Indication: MALIGNANT MELANOMA
     Route: 048
     Dates: start: 20140526, end: 20140611

REACTIONS (6)
  - Asthenia [Fatal]
  - Rash [Fatal]
  - Oropharyngeal pain [Fatal]
  - Dyshidrotic eczema [Fatal]
  - Electrocardiogram ST segment depression [Fatal]
  - Frequent bowel movements [Fatal]

NARRATIVE: CASE EVENT DATE: 20140611
